FAERS Safety Report 4772297-X (Version None)
Quarter: 2005Q3

REPORT INFORMATION
  Report Type: 
  Country: None (occurrence: None)
  Receive Date: 20050919
  Receipt Date: 20050623
  Transmission Date: 20060218
  Serious: No
  Sender: FDA-Public Use
  Company Number: US-BRISTOL-MYERS SQUIBB COMPANY-13014030

PATIENT
  Age: 65 Year
  Sex: Male
  Weight: 109 kg

DRUGS (2)
  1. DEFINITY [Suspect]
     Route: 040
     Dates: start: 20050622, end: 20050622
  2. CARDIOLITE [Concomitant]

REACTIONS (2)
  - BACK PAIN [None]
  - PAIN IN EXTREMITY [None]
